FAERS Safety Report 5366645-X (Version None)
Quarter: 2007Q2

REPORT INFORMATION
  Report Type: 
  Country: None (occurrence: None)
  Receive Date: 20070619
  Receipt Date: 20070411
  Transmission Date: 20071010
  Serious: No
  Sender: FDA-Public Use
  Company Number: 1022556-2007-00120

PATIENT

DRUGS (1)
  1. UNISOM [Suspect]
     Indication: SLEEP DISORDER THERAPY
     Dosage: 15 TABLETS
     Route: 048
     Dates: start: 20070411

REACTIONS (2)
  - INCORRECT DOSE ADMINISTERED [None]
  - VOMITING [None]
